FAERS Safety Report 10264576 (Version 1)
Quarter: 2014Q2

REPORT INFORMATION
  Report Type: Report from Study
  Country: DE (occurrence: DE)
  Receive Date: 20140627
  Receipt Date: 20140627
  Transmission Date: 20141212
  Serious: Yes (Death)
  Sender: FDA-Public Use
  Company Number: DE-BAYER-2014-093845

PATIENT
  Age: 24 Year
  Sex: Female

DRUGS (11)
  1. ASPIRINE [Suspect]
     Dosage: UNK
  2. VALPROIC ACID [Suspect]
     Indication: GENERALISED TONIC-CLONIC SEIZURE
     Dosage: UNK
  3. LAMOTRIGINE [Suspect]
     Dosage: UNK
  4. PRIMIDONE [Suspect]
     Dosage: UNK
  5. AMOXICILLIN [Suspect]
     Dosage: UNK
  6. CLINDAMYCIN [Suspect]
     Dosage: UNK
  7. METAMIZOL [Suspect]
  8. PARACETAMOL [Suspect]
     Dosage: UNK
  9. METOCLOPRAMIDE [Suspect]
     Dosage: UNK
  10. DIMENHYDRINATE [Suspect]
     Dosage: UNK
  11. ETILEFRINE [Suspect]
     Dosage: UNK

REACTIONS (1)
  - Hepatic failure [Fatal]
